FAERS Safety Report 6199253-1 (Version None)
Quarter: 2009Q2

REPORT INFORMATION
  Report Type: 
  Country: None (occurrence: None)
  Receive Date: 20090519
  Receipt Date: 20090519
  Transmission Date: 20091009
  Serious: Yes (Life-Threatening)
  Sender: FDA-Public Use
  Company Number: None

PATIENT
  Sex: Male
  Weight: 96.8 kg

DRUGS (1)
  1. FLUMAZENIL [Suspect]
     Indication: AGITATION
     Dosage: 0.5 MG TWICE IV BOLUS
     Route: 040
     Dates: start: 20090516, end: 20090516

REACTIONS (1)
  - NO ADVERSE EVENT [None]
